FAERS Safety Report 11247268 (Version 2)
Quarter: 2015Q3

REPORT INFORMATION
  Report Type: Spontaneous
  Country: FR (occurrence: FR)
  Receive Date: 20150708
  Receipt Date: 20150918
  Transmission Date: 20151125
  Serious: Yes (Death, Hospitalization)
  Sender: FDA-Public Use
  Company Number: FR-PFIZER INC-2015225889

PATIENT
  Age: 74 Year
  Sex: Female

DRUGS (4)
  1. SEROPLEX [Interacting]
     Active Substance: ESCITALOPRAM OXALATE
     Dosage: 5 MG, DAILY
     Route: 048
     Dates: end: 20150521
  2. HARVONI [Interacting]
     Active Substance: LEDIPASVIR\SOFOSBUVIR
     Indication: HEPATITIS C
     Dosage: UNK
     Route: 065
     Dates: start: 20150427
  3. BISOPROLOL [Suspect]
     Active Substance: BISOPROLOL
     Indication: SINUS BRADYCARDIA
     Dosage: 1.25 MG, 1X/DAY
  4. CORDARONE [Interacting]
     Active Substance: AMIODARONE HYDROCHLORIDE
     Indication: ATRIAL FIBRILLATION
     Dosage: 1 DF, DAILY
     Route: 048
     Dates: end: 20150521

REACTIONS (5)
  - Death [Fatal]
  - Sinus bradycardia [Recovered/Resolved]
  - Drug interaction [Fatal]
  - Vomiting [Unknown]
  - Dizziness [Unknown]

NARRATIVE: CASE EVENT DATE: 201505
